FAERS Safety Report 7723104-4 (Version None)
Quarter: 2011Q3

REPORT INFORMATION
  Report Type: 
  Country: None (occurrence: None)
  Receive Date: 20110901
  Receipt Date: 20110826
  Transmission Date: 20111222
  Serious: Yes (Hospitalization, Other)
  Sender: FDA-Public Use
  Company Number: US-AMGEN-USASP2011044286

PATIENT

DRUGS (1)
  1. EPOGEN [Suspect]
     Indication: RENAL FAILURE CHRONIC
     Dosage: UNK UNK, Q3WK
     Dates: start: 20070101

REACTIONS (3)
  - TOXICITY TO VARIOUS AGENTS [None]
  - HERPES ZOSTER [None]
  - THERAPEUTIC RESPONSE DECREASED [None]
